FAERS Safety Report 6769753-1 (Version None)
Quarter: 2010Q2

REPORT INFORMATION
  Report Type: 
  Country: None (occurrence: None)
  Receive Date: 20100615
  Receipt Date: 20100602
  Transmission Date: 20101027
  Serious: Yes (Death, Hospitalization, Other)
  Sender: FDA-Public Use
  Company Number: US-BAXTER-2008BH009162

PATIENT
  Age: 6 Month
  Sex: Male
  Weight: 8 kg

DRUGS (43)
  1. HEPARIN SODIUM [Suspect]
     Indication: CENTRAL VENOUS CATHETERISATION
     Route: 042
     Dates: start: 20070628, end: 20071101
  2. HEPARIN SODIUM [Suspect]
     Route: 042
     Dates: start: 20070628, end: 20071101
  3. HEPARIN SODIUM [Suspect]
     Indication: PARENTERAL NUTRITION
     Route: 042
     Dates: start: 20070628, end: 20071101
  4. HEPARIN SODIUM [Suspect]
     Route: 042
     Dates: start: 20070924, end: 20070927
  5. HEPARIN SODIUM [Suspect]
     Route: 042
     Dates: start: 20070924, end: 20070927
  6. HEPARIN SODIUM [Suspect]
     Route: 042
     Dates: start: 20070924, end: 20070927
  7. HEPARIN SODIUM [Suspect]
     Route: 042
     Dates: start: 20070927, end: 20070930
  8. HEPARIN SODIUM [Suspect]
     Route: 042
     Dates: start: 20070927, end: 20070930
  9. HEPARIN SODIUM [Suspect]
     Route: 042
     Dates: start: 20070927, end: 20070930
  10. HEPARIN SODIUM [Suspect]
     Route: 042
     Dates: start: 20070929, end: 20071002
  11. HEPARIN SODIUM [Suspect]
     Route: 042
     Dates: start: 20070929, end: 20071002
  12. HEPARIN SODIUM [Suspect]
     Route: 042
     Dates: start: 20070929, end: 20071002
  13. HEPARIN SODIUM [Suspect]
     Route: 042
     Dates: start: 20071002, end: 20071119
  14. HEPARIN SODIUM [Suspect]
     Route: 042
     Dates: start: 20071002, end: 20071119
  15. HEPARIN SODIUM [Suspect]
     Route: 042
     Dates: start: 20071002, end: 20071119
  16. HEPARIN SODIUM [Suspect]
     Route: 042
     Dates: start: 20070801
  17. HEPARIN SODIUM [Suspect]
     Route: 042
     Dates: start: 20070927, end: 20071010
  18. HEPARIN SODIUM [Suspect]
     Route: 042
     Dates: start: 20070929, end: 20071002
  19. HEPARIN SODIUM [Suspect]
     Route: 042
     Dates: start: 20070927, end: 20070930
  20. PHENOBARBITAL [Concomitant]
     Indication: DRUG USE FOR UNKNOWN INDICATION
     Route: 065
  21. PEPCID [Concomitant]
     Indication: DRUG USE FOR UNKNOWN INDICATION
     Route: 065
  22. ZOFRAN [Concomitant]
     Indication: DRUG USE FOR UNKNOWN INDICATION
     Route: 065
  23. GRANULOCYTE COLONY STIMULATING FACTOR [Concomitant]
     Indication: DRUG USE FOR UNKNOWN INDICATION
     Route: 065
  24. SALINE [Concomitant]
     Indication: DRUG USE FOR UNKNOWN INDICATION
     Route: 065
  25. NYSTATIN [Concomitant]
     Indication: DRUG USE FOR UNKNOWN INDICATION
     Route: 065
  26. DEXAMETHASONE [Concomitant]
     Indication: DRUG USE FOR UNKNOWN INDICATION
     Route: 048
  27. CISPLATIN [Concomitant]
     Indication: CHEMOTHERAPY
     Route: 065
  28. VINCRISTINE [Concomitant]
     Indication: CHEMOTHERAPY
     Route: 065
  29. ETOPOSIDE [Concomitant]
     Indication: CHEMOTHERAPY
     Route: 065
  30. CYTOXAN [Concomitant]
     Indication: CHEMOTHERAPY
     Route: 065
  31. CARBOPLATIN [Concomitant]
     Indication: CHEMOTHERAPY
     Route: 065
  32. KEFLEX [Concomitant]
     Indication: WOUND INFECTION
     Route: 048
  33. ACTIVASE [Concomitant]
     Route: 042
  34. SIMILAC [Concomitant]
     Indication: DRUG USE FOR UNKNOWN INDICATION
     Route: 065
  35. CLINDAMYCIN [Concomitant]
     Indication: DRUG USE FOR UNKNOWN INDICATION
     Route: 042
  36. CYCLOPHOSPHAMIDE [Concomitant]
     Indication: DRUG USE FOR UNKNOWN INDICATION
     Route: 042
  37. FAMOTIDINE [Concomitant]
     Indication: DRUG USE FOR UNKNOWN INDICATION
     Route: 065
  38. FILGRASTIM [Concomitant]
     Indication: DRUG USE FOR UNKNOWN INDICATION
     Route: 065
  39. FUROSEMIDE [Concomitant]
     Indication: DRUG USE FOR UNKNOWN INDICATION
     Route: 065
  40. MESNA [Concomitant]
     Indication: DRUG USE FOR UNKNOWN INDICATION
     Route: 065
  41. ONDANSETRON [Concomitant]
     Indication: DRUG USE FOR UNKNOWN INDICATION
     Route: 065
  42. PENTAMIDINE ISETHIONATE [Concomitant]
     Indication: DRUG USE FOR UNKNOWN INDICATION
     Route: 065
  43. HYDRALAZINE HCL [Concomitant]
     Indication: DRUG USE FOR UNKNOWN INDICATION
     Route: 065

REACTIONS (17)
  - CYANOSIS [None]
  - DIARRHOEA [None]
  - FAILURE TO THRIVE [None]
  - HYPERTENSION [None]
  - HYPOTENSION [None]
  - INCISION SITE INFECTION [None]
  - LUNG DISORDER [None]
  - NEUTROPENIA [None]
  - PETECHIAE [None]
  - PNEUMONIA [None]
  - PYREXIA [None]
  - RENAL FAILURE [None]
  - RESPIRATORY DISTRESS [None]
  - RESPIRATORY FAILURE [None]
  - TACHYCARDIA [None]
  - TACHYPNOEA [None]
  - THROMBOCYTOPENIA [None]
